FAERS Safety Report 13461437 (Version 1)
Quarter: 2017Q2

REPORT INFORMATION
  Report Type: Report from Study
  Country: US (occurrence: US)
  Receive Date: 20170420
  Receipt Date: 20170420
  Transmission Date: 20170830
  Serious: Yes (Hospitalization)
  Sender: FDA-Public Use
  Company Number: US-ROCHE-1641646

PATIENT
  Age: 56 Year
  Sex: Female
  Weight: 83.2 kg

DRUGS (110)
  1. BENADRYL [Concomitant]
     Active Substance: DIPHENHYDRAMINE HYDROCHLORIDE
     Dosage: WEEK 72
     Route: 065
     Dates: start: 20140113
  2. BENADRYL [Concomitant]
     Active Substance: DIPHENHYDRAMINE HYDROCHLORIDE
     Dosage: OPEN LABEL WEEK 2
     Route: 065
     Dates: start: 20140917
  3. METHYLPREDNISOLONE. [Concomitant]
     Active Substance: METHYLPREDNISOLONE
     Dosage: WEEK 2
     Route: 065
     Dates: start: 20120910, end: 20120910
  4. METHYLPREDNISOLONE. [Concomitant]
     Active Substance: METHYLPREDNISOLONE
     Dosage: WEEK 72
     Route: 065
     Dates: start: 20140113, end: 20140113
  5. METHYLPREDNISOLONE. [Concomitant]
     Active Substance: METHYLPREDNISOLONE
     Dosage: OPEN LABEL WEEK 24
     Route: 065
     Dates: start: 20150204, end: 20150204
  6. MORPHINE ER [Concomitant]
     Active Substance: MORPHINE
     Route: 048
     Dates: start: 2011, end: 20130422
  7. SERTRALINE [Concomitant]
     Active Substance: SERTRALINE HYDROCHLORIDE
     Route: 065
     Dates: start: 2008
  8. CECLOR [Concomitant]
     Active Substance: CEFACLOR
     Route: 065
     Dates: start: 20120726, end: 201208
  9. POTASSIUM CITRATE. [Concomitant]
     Active Substance: POTASSIUM CITRATE
     Route: 048
     Dates: start: 20130401, end: 201304
  10. PYRIDIUM [Concomitant]
     Active Substance: PHENAZOPYRIDINE
     Route: 065
     Dates: start: 20140620, end: 20140630
  11. LEVAQUIN [Concomitant]
     Active Substance: LEVOFLOXACIN
     Route: 065
     Dates: start: 20160126, end: 20160204
  12. LEVAQUIN [Concomitant]
     Active Substance: LEVOFLOXACIN
     Route: 065
     Dates: start: 20160405, end: 20160409
  13. VENTOLIN [Concomitant]
     Active Substance: ALBUTEROL SULFATE
     Route: 065
     Dates: start: 20160218
  14. PLACEBO [Suspect]
     Active Substance: UNSPECIFIED INGREDIENT
     Indication: RELAPSING-REMITTING MULTIPLE SCLEROSIS
     Dosage: WEEK 1
     Route: 042
     Dates: start: 20120827, end: 20120827
  15. INTERFERON BETA-1A [Suspect]
     Active Substance: INTERFERON BETA-1A
     Dosage: FOR WEEKS 3 AND 4: 22 MICROGRAM INJECTION 3 TIMES PER WEEK;?FOR THE 5TH WEEK: 44 MICROGRAM INJECTION
     Route: 058
     Dates: end: 20140720
  16. OCRELIZUMAB [Suspect]
     Active Substance: OCRELIZUMAB
     Dosage: OPEN LABEL WEEK 24
     Route: 042
     Dates: start: 20150204, end: 20150204
  17. ALOE VERA [Concomitant]
     Active Substance: ALOE VERA LEAF
     Route: 065
     Dates: start: 20141125, end: 2015
  18. BENADRYL [Concomitant]
     Active Substance: DIPHENHYDRAMINE HYDROCHLORIDE
     Dosage: WEEK 1
     Route: 065
     Dates: start: 20120827
  19. BENADRYL [Concomitant]
     Active Substance: DIPHENHYDRAMINE HYDROCHLORIDE
     Dosage: OPEN LABEL WEEK 24
     Route: 065
     Dates: start: 20150204
  20. TYLENOL [Concomitant]
     Active Substance: ACETAMINOPHEN
     Dosage: OPEN LABEL WEEK 0
     Route: 065
     Dates: start: 20140721
  21. TYLENOL [Concomitant]
     Active Substance: ACETAMINOPHEN
     Dosage: OPEN LABEL WEEK 2
     Route: 065
     Dates: start: 20140917
  22. NUVIGIL [Concomitant]
     Active Substance: ARMODAFINIL
     Route: 065
     Dates: start: 2010
  23. SUMATRIPTAN. [Concomitant]
     Active Substance: SUMATRIPTAN
     Route: 065
     Dates: start: 2008, end: 201510
  24. DETROL LA [Concomitant]
     Active Substance: TOLTERODINE TARTRATE
     Route: 065
     Dates: start: 20130701, end: 201512
  25. LEVAQUIN [Concomitant]
     Active Substance: LEVOFLOXACIN
     Route: 065
     Dates: start: 20141215, end: 20141224
  26. LEVAQUIN [Concomitant]
     Active Substance: LEVOFLOXACIN
     Route: 042
  27. KEFLEX [Concomitant]
     Active Substance: CEPHALEXIN
     Route: 065
     Dates: start: 20160428
  28. MUCINEX DM [Concomitant]
     Active Substance: DEXTROMETHORPHAN HYDROBROMIDE\GUAIFENESIN
     Route: 048
     Dates: start: 20150602, end: 20150604
  29. DUONEB [Concomitant]
     Active Substance: ALBUTEROL SULFATE\IPRATROPIUM BROMIDE
  30. BENADRYL [Concomitant]
     Active Substance: DIPHENHYDRAMINE HYDROCHLORIDE
     Dosage: WEEK 24
     Route: 065
     Dates: start: 20130211
  31. METHYLPREDNISOLONE. [Concomitant]
     Active Substance: METHYLPREDNISOLONE
     Dosage: WEEK 24
     Route: 065
     Dates: start: 20130211, end: 20130211
  32. NITROFURANTOIN. [Concomitant]
     Active Substance: NITROFURANTOIN
     Route: 065
     Dates: start: 20130212, end: 20130326
  33. PREDNISONE. [Concomitant]
     Active Substance: PREDNISONE
     Route: 065
     Dates: start: 20130306, end: 20130308
  34. MORPHINE [Concomitant]
     Active Substance: MORPHINE
     Route: 065
     Dates: start: 20140624
  35. FOLIC ACID. [Concomitant]
     Active Substance: FOLIC ACID
     Route: 065
     Dates: start: 20130723, end: 201512
  36. CEPHALEXIN. [Concomitant]
     Active Substance: CEPHALEXIN
     Route: 065
     Dates: start: 20140409, end: 20140418
  37. PYRIDIUM [Concomitant]
     Active Substance: PHENAZOPYRIDINE
     Route: 065
     Dates: start: 20140409, end: 20140418
  38. CRESTOR [Concomitant]
     Active Substance: ROSUVASTATIN CALCIUM
     Route: 065
     Dates: start: 20140602, end: 201512
  39. BACTRIM DS [Concomitant]
     Active Substance: SULFAMETHOXAZOLE\TRIMETHOPRIM
     Route: 065
     Dates: start: 20140620, end: 20140706
  40. LEVAQUIN [Concomitant]
     Active Substance: LEVOFLOXACIN
     Route: 065
     Dates: start: 20140731, end: 20140809
  41. ROCEPHIN [Concomitant]
     Active Substance: CEFTRIAXONE SODIUM
     Route: 065
     Dates: start: 20150601, end: 20150601
  42. MACROBID (UNITED STATES) [Concomitant]
     Route: 065
     Dates: start: 20150530, end: 20150604
  43. ALBUTEROL. [Concomitant]
     Active Substance: ALBUTEROL
     Route: 065
     Dates: start: 20150602, end: 20150604
  44. CIPRO [Concomitant]
     Active Substance: CIPROFLOXACIN HYDROCHLORIDE
     Route: 065
     Dates: start: 20160308, end: 20160317
  45. VITAMIN C [Concomitant]
     Active Substance: ASCORBIC ACID
     Route: 065
     Dates: start: 20160428
  46. PLACEBO [Suspect]
     Active Substance: UNSPECIFIED INGREDIENT
     Dosage: WEEK 72
     Route: 042
     Dates: start: 20140113, end: 20140113
  47. OCRELIZUMAB [Suspect]
     Active Substance: OCRELIZUMAB
     Indication: RELAPSING-REMITTING MULTIPLE SCLEROSIS
     Dosage: OPEN LABEL WEEK 0
     Route: 042
     Dates: start: 20140721, end: 20140721
  48. METHYLPREDNISOLONE. [Concomitant]
     Active Substance: METHYLPREDNISOLONE
     Dosage: WEEK 1
     Route: 065
     Dates: start: 20120827, end: 20120827
  49. PREDNISONE. [Concomitant]
     Active Substance: PREDNISONE
     Route: 065
     Dates: start: 20130312, end: 20130314
  50. PREDNISONE. [Concomitant]
     Active Substance: PREDNISONE
     Route: 065
     Dates: start: 20160218, end: 20160309
  51. SULFAMETHOXAZOLE [Concomitant]
     Active Substance: SULFAMETHOXAZOLE
     Route: 065
     Dates: start: 20130405, end: 20130415
  52. MORPHINE [Concomitant]
     Active Substance: MORPHINE
     Route: 065
     Dates: start: 20130423, end: 20140119
  53. LOVAZA [Concomitant]
     Active Substance: OMEGA-3-ACID ETHYL ESTERS
     Route: 065
     Dates: start: 20130805, end: 201512
  54. ROCEPHIN [Concomitant]
     Active Substance: CEFTRIAXONE SODIUM
     Route: 065
     Dates: start: 20150602, end: 20150604
  55. MUCINEX DM [Concomitant]
     Active Substance: DEXTROMETHORPHAN HYDROBROMIDE\GUAIFENESIN
     Route: 048
     Dates: start: 20150930, end: 20151001
  56. GUGULIPID [Concomitant]
     Route: 065
     Dates: start: 201209, end: 201509
  57. CHERATUSSIN [Concomitant]
     Active Substance: AMMONIUM CHLORIDE\DEXTROMETHORPHAN\SODIUM CITRATE
     Dosage: 100MG/5ML
     Route: 065
     Dates: start: 20160218, end: 201606
  58. FERROUS SULFATE. [Concomitant]
     Active Substance: FERROUS SULFATE
     Route: 065
     Dates: start: 2011
  59. BENADRYL [Concomitant]
     Active Substance: DIPHENHYDRAMINE HYDROCHLORIDE
     Dosage: WEEK 2
     Route: 065
     Dates: start: 20120910
  60. BENADRYL [Concomitant]
     Active Substance: DIPHENHYDRAMINE HYDROCHLORIDE
     Dosage: OPEN-LABEL WEEK 0
     Route: 065
     Dates: start: 20140721
  61. TYLENOL [Concomitant]
     Active Substance: ACETAMINOPHEN
     Dosage: WEEK 24
     Route: 065
     Dates: start: 20130211
  62. TYLENOL [Concomitant]
     Active Substance: ACETAMINOPHEN
     Dosage: OPEN LABEL WEEK 24
     Route: 065
     Dates: start: 20150204
  63. METHYLPREDNISOLONE. [Concomitant]
     Active Substance: METHYLPREDNISOLONE
     Dosage: WEEK 48
     Route: 065
     Dates: start: 20130729, end: 20130729
  64. NITROFURANTOIN. [Concomitant]
     Active Substance: NITROFURANTOIN
     Route: 065
     Dates: start: 20140620, end: 201411
  65. DOXYCYCLINE. [Concomitant]
     Active Substance: DOXYCYCLINE
     Route: 065
     Dates: start: 20130309, end: 20130314
  66. BACTRIM [Concomitant]
     Active Substance: SULFAMETHOXAZOLE\TRIMETHOPRIM
     Route: 065
     Dates: start: 20131223, end: 20131228
  67. BACTRIM [Concomitant]
     Active Substance: SULFAMETHOXAZOLE\TRIMETHOPRIM
     Route: 065
     Dates: start: 20130213, end: 20130220
  68. GABAPENTIN. [Concomitant]
     Active Substance: GABAPENTIN
     Route: 065
     Dates: start: 201601
  69. BREO ELLIPTA [Concomitant]
     Active Substance: FLUTICASONE FUROATE\VILANTEROL TRIFENATATE
     Route: 055
     Dates: start: 20160218, end: 201606
  70. CRANBERRY. [Concomitant]
     Active Substance: CRANBERRY
     Route: 065
     Dates: start: 20160428
  71. PLACEBO [Suspect]
     Active Substance: UNSPECIFIED INGREDIENT
     Dosage: WEEK 48
     Route: 042
     Dates: start: 20130729, end: 20130729
  72. BENADRYL [Concomitant]
     Active Substance: DIPHENHYDRAMINE HYDROCHLORIDE
     Dosage: WEEK 48
     Route: 065
     Dates: start: 20130729
  73. VESICARE [Concomitant]
     Active Substance: SOLIFENACIN SUCCINATE
     Route: 065
     Dates: start: 2010, end: 201212
  74. PREDNISONE. [Concomitant]
     Active Substance: PREDNISONE
     Route: 065
     Dates: start: 20130309, end: 20130311
  75. GENTAMICIN. [Concomitant]
     Active Substance: GENTAMICIN
     Route: 065
     Dates: start: 20130423, end: 20130428
  76. MORPHINE [Concomitant]
     Active Substance: MORPHINE
     Route: 065
     Dates: start: 20140120, end: 20140327
  77. MORPHINE [Concomitant]
     Active Substance: MORPHINE
     Route: 065
     Dates: start: 20140328, end: 20140408
  78. LYRICA [Concomitant]
     Active Substance: PREGABALIN
     Route: 065
     Dates: start: 20130726, end: 201512
  79. LEVAQUIN [Concomitant]
     Active Substance: LEVOFLOXACIN
     Route: 065
     Dates: start: 20150805, end: 20150812
  80. KEFLEX [Concomitant]
     Active Substance: CEPHALEXIN
     Route: 065
     Dates: start: 20141008, end: 20141018
  81. BACTRIM [Concomitant]
     Active Substance: SULFAMETHOXAZOLE\TRIMETHOPRIM
     Route: 065
     Dates: start: 20121115, end: 20121124
  82. OCRELIZUMAB [Suspect]
     Active Substance: OCRELIZUMAB
     Dosage: OPEN LABEL WEEK 2
     Route: 042
     Dates: start: 20140917, end: 20140917
  83. TYLENOL [Concomitant]
     Active Substance: ACETAMINOPHEN
     Dosage: WEEK 48
     Route: 065
     Dates: start: 20130729
  84. METHYLPREDNISOLONE. [Concomitant]
     Active Substance: METHYLPREDNISOLONE
     Dosage: OPEN LABEL WEEK 0
     Route: 065
     Dates: start: 20140721, end: 20140721
  85. NITROFURANTOIN. [Concomitant]
     Active Substance: NITROFURANTOIN
     Route: 065
     Dates: start: 20130327, end: 201304
  86. PREDNISONE. [Concomitant]
     Active Substance: PREDNISONE
     Route: 065
     Dates: start: 20130315, end: 20130315
  87. MORPHINE [Concomitant]
     Active Substance: MORPHINE
     Route: 065
     Dates: start: 20140409, end: 20140623
  88. CEPHALEXIN. [Concomitant]
     Active Substance: CEPHALEXIN
     Route: 065
     Dates: start: 20130930, end: 20131003
  89. LEVAQUIN [Concomitant]
     Active Substance: LEVOFLOXACIN
     Route: 065
     Dates: start: 20150930, end: 20151001
  90. LEVAQUIN [Concomitant]
     Active Substance: LEVOFLOXACIN
     Route: 065
     Dates: start: 20160418, end: 20160422
  91. ROCEPHIN [Concomitant]
     Active Substance: CEFTRIAXONE SODIUM
     Route: 065
     Dates: start: 20141220, end: 20141222
  92. AZITHROMYCIN ANHYDROUS. [Concomitant]
     Active Substance: AZITHROMYCIN ANHYDROUS
     Dosage: Z-PACK
     Route: 065
     Dates: start: 20150828, end: 20150902
  93. NORMAL SALINE [Concomitant]
     Active Substance: SODIUM CHLORIDE
     Route: 065
     Dates: start: 20150930, end: 20151001
  94. AUGMENTIN [Concomitant]
     Active Substance: AMOXICILLIN\CLAVULANATE POTASSIUM
     Route: 065
     Dates: start: 20151217, end: 20151226
  95. PLACEBO [Suspect]
     Active Substance: UNSPECIFIED INGREDIENT
     Dosage: WEEK 24
     Route: 042
     Dates: start: 20130211, end: 20130211
  96. TYLENOL [Concomitant]
     Active Substance: ACETAMINOPHEN
     Dosage: WEEK 1
     Route: 065
     Dates: start: 20120827
  97. TYLENOL [Concomitant]
     Active Substance: ACETAMINOPHEN
     Dosage: WEEK 2
     Route: 065
     Dates: start: 20120910
  98. TYLENOL [Concomitant]
     Active Substance: ACETAMINOPHEN
     Dosage: WEEK 72
     Route: 065
     Dates: start: 20140113
  99. METHYLPREDNISOLONE. [Concomitant]
     Active Substance: METHYLPREDNISOLONE
     Dosage: OPEN LABEL WEEK 2
     Route: 065
     Dates: start: 20140917, end: 20140917
  100. BUTALBITAL [Concomitant]
     Active Substance: BUTALBITAL
     Route: 065
     Dates: start: 2008, end: 201510
  101. ESTRADIOL. [Concomitant]
     Active Substance: ESTRADIOL
     Route: 065
     Dates: start: 201203, end: 201512
  102. HYDROMORPHONE [Concomitant]
     Active Substance: HYDROMORPHONE
     Route: 048
     Dates: start: 2011
  103. DOXYCYCLINE. [Concomitant]
     Active Substance: DOXYCYCLINE
     Route: 065
     Dates: start: 20160218, end: 20160301
  104. SUPRAX (UNITED STATES) [Concomitant]
     Route: 065
     Dates: start: 20140213, end: 20140219
  105. SUPRAX (UNITED STATES) [Concomitant]
     Route: 065
     Dates: start: 20140402, end: 20140406
  106. BACTRIM DS [Concomitant]
     Active Substance: SULFAMETHOXAZOLE\TRIMETHOPRIM
     Route: 065
     Dates: start: 20141230, end: 20150108
  107. LEVAQUIN [Concomitant]
     Active Substance: LEVOFLOXACIN
     Route: 065
     Dates: start: 20150602, end: 20150604
  108. LEVAQUIN [Concomitant]
     Active Substance: LEVOFLOXACIN
     Route: 065
     Dates: start: 20151130, end: 20151206
  109. PLACEBO [Suspect]
     Active Substance: UNSPECIFIED INGREDIENT
     Dosage: WEEK 2
     Route: 042
     Dates: start: 20120910, end: 20120910
  110. INTERFERON BETA-1A [Suspect]
     Active Substance: INTERFERON BETA-1A
     Indication: RELAPSING-REMITTING MULTIPLE SCLEROSIS
     Dosage: WEEK 1 AND 2
     Route: 058
     Dates: start: 20120827

REACTIONS (2)
  - Pneumonia [Recovered/Resolved]
  - Pneumonia [Recovered/Resolved]

NARRATIVE: CASE EVENT DATE: 20150601
